FAERS Safety Report 23056344 (Version 2)
Quarter: 2023Q4

REPORT INFORMATION
  Report Type: Report from Study
  Country: BR (occurrence: BR)
  Receive Date: 20231011
  Receipt Date: 20231026
  Transmission Date: 20240110
  Serious: Yes (Life-Threatening)
  Sender: FDA-Public Use
  Company Number: BR-JNJFOC-20230800883

PATIENT
  Age: 39 Year
  Sex: Male
  Weight: 89.5 kg

DRUGS (5)
  1. PLACEBO [Suspect]
     Active Substance: UNSPECIFIED INGREDIENT
     Indication: Crohn^s disease
     Route: 042
     Dates: start: 20221017, end: 20230707
  2. BUSCOPAMINE [Concomitant]
     Indication: Abdominal pain
     Route: 048
  3. DIPYRONE [Concomitant]
     Active Substance: DIPYRONE
     Indication: Abdominal pain
     Route: 048
     Dates: start: 2017
  4. DIPYRONE [Concomitant]
     Active Substance: DIPYRONE
     Indication: Arthralgia
  5. LOPERAMIDE [Concomitant]
     Active Substance: LOPERAMIDE
     Indication: Diarrhoea
     Route: 048
     Dates: start: 20230622, end: 20230725

REACTIONS (1)
  - Blood alkaline phosphatase increased [Recovered/Resolved]

NARRATIVE: CASE EVENT DATE: 20230707
